FAERS Safety Report 15605300 (Version 1)
Quarter: 2018Q4

REPORT INFORMATION
  Report Type: Report from Study
  Country: GB (occurrence: GB)
  Receive Date: 20181112
  Receipt Date: 20181112
  Transmission Date: 20190205
  Serious: Yes (Hospitalization)
  Sender: FDA-Public Use
  Company Number: GB-ROCHE-2207715

PATIENT

DRUGS (5)
  1. ONDANSETRON [Concomitant]
     Active Substance: ONDANSETRON
     Dosage: LAST DOSE GIVEN: 4.0 MG
     Route: 048
     Dates: start: 20180927
  2. COTRIMOXAZOLE [Concomitant]
     Active Substance: SULFAMETHOXAZOLE\TRIMETHOPRIM
     Indication: PROPHYLAXIS
     Dosage: LAST DOSE GIVEN: 240 MG
     Route: 048
     Dates: start: 20180927
  3. NITROFURANTOIN. [Concomitant]
     Active Substance: NITROFURANTOIN
     Indication: PROPHYLAXIS
     Dosage: LAST DOSE GIVEN: 17.5 MG
     Route: 048
     Dates: start: 20180928
  4. BEVACIZUMAB. [Suspect]
     Active Substance: BEVACIZUMAB
     Indication: NEUROBLASTOMA RECURRENT
     Dosage: LAST DOSE GIEVN: 175 MG ON 25/OCT/2018?CYCLE: 2
     Route: 042
     Dates: start: 20180927
  5. TEMOZOLOMIDE. [Suspect]
     Active Substance: TEMOZOLOMIDE
     Indication: NEUROBLASTOMA
     Dosage: LAST DOSE GIVEN: 150 MG ON 28/OCT/2018?CYCLE: 2
     Route: 048
     Dates: start: 20180927

REACTIONS (1)
  - Device related infection [Not Recovered/Not Resolved]

NARRATIVE: CASE EVENT DATE: 20181028
